FAERS Safety Report 21328713 (Version 2)
Quarter: 2023Q1

REPORT INFORMATION
  Report Type: Report from Study
  Country: CO (occurrence: CO)
  Receive Date: 20220913
  Receipt Date: 20230131
  Transmission Date: 20230418
  Serious: Yes (Hospitalization, Other)
  Sender: FDA-Public Use
  Company Number: CO-TAKEDA-2022TUS063859

PATIENT
  Age: 33 Year
  Sex: Female
  Weight: 70 kg

DRUGS (1)
  1. VEDOLIZUMAB [Suspect]
     Active Substance: VEDOLIZUMAB
     Indication: Colitis ulcerative
     Dosage: 300 MILLIGRAM
     Route: 042
     Dates: start: 20220210

REACTIONS (3)
  - Diarrhoea [Recovering/Resolving]
  - Diarrhoea haemorrhagic [Recovering/Resolving]
  - Abdominal pain [Recovering/Resolving]

NARRATIVE: CASE EVENT DATE: 20220901
